FAERS Safety Report 9498441 (Version 2)
Quarter: 2013Q4

REPORT INFORMATION
  Report Type: Spontaneous
  Country: DK (occurrence: DK)
  Receive Date: 20130904
  Receipt Date: 20131018
  Transmission Date: 20140711
  Serious: Yes (Other)
  Sender: FDA-Public Use
  Company Number: DK-GLAXOSMITHKLINE-B0918630A

PATIENT
  Sex: Female

DRUGS (7)
  1. LAPATINIB [Suspect]
     Indication: BREAST CANCER
     Route: 065
     Dates: start: 20121105, end: 20121109
  2. HERCEPTIN [Suspect]
     Indication: BREAST CANCER
     Route: 042
     Dates: start: 20110418, end: 20121115
  3. XELODA [Suspect]
     Indication: BREAST CANCER
     Route: 048
     Dates: start: 20110322, end: 20111124
  4. TAXOL [Concomitant]
     Indication: BREAST CANCER
     Route: 065
  5. FULVESTRANT [Concomitant]
  6. OXALIPLATIN [Concomitant]
  7. VINORELBINE [Concomitant]
     Dates: start: 20130107, end: 20130807

REACTIONS (2)
  - Disease progression [Unknown]
  - Toxicity to various agents [Unknown]
